FAERS Safety Report 24444903 (Version 2)
Quarter: 2024Q4

REPORT INFORMATION
  Report Type: Report from Study
  Country: ZA (occurrence: ZA)
  Receive Date: 20241016
  Receipt Date: 20241017
  Transmission Date: 20250115
  Serious: No
  Sender: ROCHE
  Company Number: ZA-ROCHE-3004372

PATIENT
  Age: 81 Year
  Sex: Female
  Weight: 50.0 kg

DRUGS (3)
  1. RITUXIMAB [Suspect]
     Active Substance: RITUXIMAB
     Indication: Rheumatoid arthritis
     Dosage: 0 IN 14 DAYS
     Route: 041
  2. RITUXIMAB [Suspect]
     Active Substance: RITUXIMAB
     Indication: Systemic lupus erythematosus
  3. RITUXIMAB [Suspect]
     Active Substance: RITUXIMAB
     Indication: Interstitial lung disease

REACTIONS (4)
  - Aspartate aminotransferase increased [Unknown]
  - Off label use [Unknown]
  - Alanine aminotransferase increased [Unknown]
  - Malaise [Unknown]

NARRATIVE: CASE EVENT DATE: 20211112
